FAERS Safety Report 9027946 (Version 1)
Quarter: 2013Q1

REPORT INFORMATION
  Report Type: Spontaneous
  Country: US (occurrence: None)
  Receive Date: 20130114
  Receipt Date: 20130114
  Transmission Date: 20140127
  Serious: Yes (Hospitalization)
  Sender: FDA-Public Use
  Company Number: None

PATIENT
  Sex: Male

DRUGS (2)
  1. PEGASYS [Suspect]
     Indication: HEPATITIS C
     Dosage: 180 MCG ONCE A WEEK SUBCUTANEOUSLY
     Route: 058
     Dates: start: 20120628, end: 20121201
  2. RIBAVIRIN [Suspect]
     Indication: HEPATITIS C
     Dosage: 600 MG TWICE A DAY BY MOUTH
     Route: 048
     Dates: start: 20120628, end: 20121201

REACTIONS (7)
  - Pneumonia [None]
  - Renal disorder [None]
  - Liver disorder [None]
  - Jaundice [None]
  - Anaemia [None]
  - Fatigue [None]
  - White blood cell count decreased [None]
